FAERS Safety Report 20617900 (Version 4)
Quarter: 2022Q2

REPORT INFORMATION
  Report Type: Spontaneous
  Country: CH (occurrence: CH)
  Receive Date: 20220321
  Receipt Date: 20220524
  Transmission Date: 20220721
  Serious: Yes (Death, Other)
  Sender: FDA-Public Use
  Company Number: CH-BAYER-2022A040351

PATIENT

DRUGS (1)
  1. VITRAKVI [Suspect]
     Active Substance: LAROTRECTINIB
     Indication: Transitional cell carcinoma
     Dosage: UNK
     Dates: start: 20200416, end: 20200525

REACTIONS (6)
  - Death [Fatal]
  - Metastases to skin [None]
  - Ascites [None]
  - Weight decreased [None]
  - Asthenia [None]
  - Off label use [None]
